FAERS Safety Report 9277485 (Version 1)
Quarter: 2013Q2

REPORT INFORMATION
  Report Type: Spontaneous
  Country: FR (occurrence: FR)
  Receive Date: 20130508
  Receipt Date: 20130508
  Transmission Date: 20140414
  Serious: Yes (Hospitalization)
  Sender: FDA-Public Use
  Company Number: FR-JNJFOC-20130418043

PATIENT
  Age: 54 Year
  Sex: Male

DRUGS (3)
  1. IXPRIM [Suspect]
     Indication: BACK PAIN
     Route: 048
     Dates: start: 20130305, end: 20130311
  2. MYOLASTAN [Suspect]
     Indication: BACK PAIN
     Route: 048
     Dates: start: 20130305, end: 20130311
  3. KETOPROFEN [Suspect]
     Indication: BACK PAIN
     Route: 048
     Dates: start: 20130305, end: 20130311

REACTIONS (1)
  - Rash maculo-papular [Recovered/Resolved]
